FAERS Safety Report 9900833 (Version 3)
Quarter: 2014Q3

REPORT INFORMATION
  Report Type: Report from Study
  Country: US (occurrence: US)
  Receive Date: 20140217
  Receipt Date: 20140709
  Transmission Date: 20150326
  Serious: Yes (Hospitalization, Other)
  Sender: FDA-Public Use
  Company Number: US-ALEXION-A201202733

PATIENT

DRUGS (1)
  1. SOLIRIS [Suspect]
     Active Substance: ECULIZUMAB
     Indication: PAROXYSMAL NOCTURNAL HAEMOGLOBINURIA
     Route: 042

REACTIONS (11)
  - Haemoglobin decreased [Unknown]
  - Device related infection [Recovering/Resolving]
  - Nephrolithiasis [Unknown]
  - Sepsis [Recovering/Resolving]
  - Transfusion [Unknown]
  - Lethargy [Unknown]
  - Migraine [Unknown]
  - Anaemia [Unknown]
  - Myelodysplastic syndrome [Unknown]
  - Pancreatitis [Unknown]
  - Abdominal pain upper [Unknown]

NARRATIVE: CASE EVENT DATE: 2012
